FAERS Safety Report 6598809-1 (Version None)
Quarter: 2010Q1

REPORT INFORMATION
  Report Type: 
  Country: None (occurrence: None)
  Receive Date: 20100224
  Receipt Date: 20100211
  Transmission Date: 20100710
  Serious: Yes (Other)
  Sender: FDA-Public Use
  Company Number: US-PFIZER INC-2010018965

PATIENT
  Sex: Female
  Weight: 61.224 kg

DRUGS (7)
  1. GEODON [Suspect]
     Indication: BIPOLAR DISORDER
     Dosage: 40 MG, 2X/DAY
     Route: 048
     Dates: start: 20100121, end: 20100129
  2. CYMBALTA [Concomitant]
  3. SYNTHROID [Concomitant]
  4. NEURONTIN [Concomitant]
  5. BENADRYL [Concomitant]
  6. TRAZODONE HYDROCHLORIDE [Concomitant]
  7. NALTREXONE HYDROCHLORIDE [Concomitant]

REACTIONS (2)
  - LOSS OF CONSCIOUSNESS [None]
  - MUSCLE DISORDER [None]
